FAERS Safety Report 9346080 (Version 1)
Quarter: 2013Q2

REPORT INFORMATION
  Report Type: Report from Study
  Country: NL (occurrence: NL)
  Receive Date: 20130613
  Receipt Date: 20130613
  Transmission Date: 20140414
  Serious: Yes (Hospitalization, Other)
  Sender: FDA-Public Use
  Company Number: PHHO2013NL006143

PATIENT
  Age: 65 Year
  Sex: Male
  Weight: 90 kg

DRUGS (4)
  1. ACENOCOUMAROL [Suspect]
     Indication: CARDIAC FAILURE
     Dosage: 1 MG, QD
     Dates: start: 20081212, end: 20130501
  2. BLINDED ENALAPRIL [Suspect]
     Indication: CARDIAC FAILURE CHRONIC
     Dosage: DOUBLE BLIND
     Route: 048
     Dates: start: 20120223
  3. BLINDED LCZ696 [Suspect]
     Indication: CARDIAC FAILURE CHRONIC
     Dosage: DOUBLE BLIND
     Route: 048
     Dates: start: 20120223
  4. BLINDED NO TREATMENT RECEIVED [Suspect]
     Indication: CARDIAC FAILURE CHRONIC
     Dosage: DOUBLE BLIND
     Route: 048
     Dates: start: 20120223

REACTIONS (2)
  - Haematuria [Recovered/Resolved]
  - Bladder transitional cell carcinoma [Not Recovered/Not Resolved]
